FAERS Safety Report 17894087 (Version 1)
Quarter: 2020Q2

REPORT INFORMATION
  Report Type: Spontaneous
  Country: CA (occurrence: CA)
  Receive Date: 20200615
  Receipt Date: 20200615
  Transmission Date: 20200714
  Serious: Yes (Other)
  Sender: FDA-Public Use
  Company Number: CA-TEVA-2020-CA-1248005

PATIENT
  Age: 76 Year
  Sex: Female

DRUGS (33)
  1. ENBREL [Suspect]
     Active Substance: ETANERCEPT
     Indication: RHEUMATOID ARTHRITIS
     Route: 065
  2. REMICADE [Suspect]
     Active Substance: INFLIXIMAB
     Indication: PRODUCT USED FOR UNKNOWN INDICATION
     Route: 042
  3. PANTOPRAZOLE [Concomitant]
     Active Substance: PANTOPRAZOLE
  4. DARIFENACIN. [Concomitant]
     Active Substance: DARIFENACIN
  5. DIPHENHYDRAMINE. [Concomitant]
     Active Substance: DIPHENHYDRAMINE
  6. URISPAS [Concomitant]
     Active Substance: FLAVOXATE HYDROCHLORIDE
     Route: 065
  7. METHOTREXATE. [Suspect]
     Active Substance: METHOTREXATE
     Indication: PRODUCT USED FOR UNKNOWN INDICATION
     Route: 065
  8. ORENCIA [Suspect]
     Active Substance: ABATACEPT
     Indication: PRODUCT USED FOR UNKNOWN INDICATION
     Route: 065
  9. ACETAMINOPHEN. [Concomitant]
     Active Substance: ACETAMINOPHEN
  10. CODEINE [Concomitant]
     Active Substance: CODEINE
  11. DILAUDID [Concomitant]
     Active Substance: HYDROMORPHONE HYDROCHLORIDE
  12. HUMIRA [Suspect]
     Active Substance: ADALIMUMAB
     Indication: PRODUCT USED FOR UNKNOWN INDICATION
     Route: 058
  13. FUROSEMIDE. [Concomitant]
     Active Substance: FUROSEMIDE
  14. ARAVA [Suspect]
     Active Substance: LEFLUNOMIDE
     Indication: PRODUCT USED FOR UNKNOWN INDICATION
     Route: 065
  15. XELJANZ [Suspect]
     Active Substance: TOFACITINIB CITRATE
     Indication: PRODUCT USED FOR UNKNOWN INDICATION
     Route: 065
  16. LOPERAMIDE [Concomitant]
     Active Substance: LOPERAMIDE
  17. OMNARIS [Concomitant]
     Active Substance: CICLESONIDE
  18. OXYNEO [Concomitant]
     Active Substance: OXYCODONE
  19. ANAKINRA [Concomitant]
     Active Substance: ANAKINRA
     Route: 065
  20. SYNTHROID [Concomitant]
     Active Substance: LEVOTHYROXINE SODIUM
  21. VAGIFEM [Concomitant]
     Active Substance: ESTRADIOL
  22. HYDROMORPHONE [Concomitant]
     Active Substance: HYDROMORPHONE
  23. KADIAN [Concomitant]
     Active Substance: MORPHINE SULFATE
  24. NORFLEX [ORPHENADRINE CITRTAE] [Concomitant]
  25. RESTASIS [Concomitant]
     Active Substance: CYCLOSPORINE
  26. RITUXIMAB. [Concomitant]
     Active Substance: RITUXIMAB
     Route: 042
  27. TRIMETHOPRIM. [Concomitant]
     Active Substance: TRIMETHOPRIM
  28. ACTEMRA [Suspect]
     Active Substance: TOCILIZUMAB
     Indication: PRODUCT USED FOR UNKNOWN INDICATION
     Route: 065
  29. HYDROXYCHLOROQUINE SULFATE. [Suspect]
     Active Substance: HYDROXYCHLOROQUINE SULFATE
     Indication: PRODUCT USED FOR UNKNOWN INDICATION
     Dosage: 400 MILLIGRAM DAILY;
     Route: 065
  30. SODIUM AUROTHIOMALATE [Suspect]
     Active Substance: GOLD SODIUM THIOMALATE
     Indication: PRODUCT USED FOR UNKNOWN INDICATION
     Route: 065
  31. ATIVAN [Concomitant]
     Active Substance: LORAZEPAM
  32. DESOXIMETASONE. [Concomitant]
     Active Substance: DESOXIMETASONE
  33. KENALOG [Concomitant]
     Active Substance: TRIAMCINOLONE ACETONIDE
     Route: 065

REACTIONS (16)
  - Fibromyalgia [Unknown]
  - Leukopenia [Unknown]
  - Blood cholesterol increased [Unknown]
  - Joint swelling [Unknown]
  - Peripheral swelling [Unknown]
  - Pneumonia viral [Unknown]
  - Soft tissue disorder [Unknown]
  - Herpes zoster [Unknown]
  - Therapeutic product effect incomplete [Unknown]
  - Arthritis [Unknown]
  - Liver function test abnormal [Unknown]
  - Drug ineffective [Unknown]
  - Infection [Unknown]
  - Synovitis [Unknown]
  - Anaemia [Unknown]
  - Arthralgia [Unknown]
